FAERS Safety Report 8134127-8 (Version None)
Quarter: 2012Q1

REPORT INFORMATION
  Report Type: 
  Country: None (occurrence: None)
  Receive Date: 20120214
  Receipt Date: 20120131
  Transmission Date: 20120608
  Serious: Yes (Other)
  Sender: FDA-Public Use
  Company Number: HR-RANBAXY-2012RR-52426

PATIENT
  Age: 42 Year
  Sex: Male

DRUGS (7)
  1. QUETIAPINE [Concomitant]
     Indication: SCHIZOAFFECTIVE DISORDER
     Dosage: UNK
     Route: 065
  2. LITHIUM CARBONATE [Concomitant]
     Indication: SCHIZOAFFECTIVE DISORDER
     Dosage: 900 MG/DAY
     Route: 065
  3. LORAZEPAM [Suspect]
     Indication: SCHIZOAFFECTIVE DISORDER
     Dosage: 900 MG/DAY
     Route: 065
  4. HALOPERIDOL [Suspect]
     Indication: SCHIZOAFFECTIVE DISORDER
     Dosage: 10 MG/DAY
     Route: 065
  5. CLOZAPINE [Suspect]
     Indication: SCHIZOAFFECTIVE DISORDER
     Dosage: 25, UNK
     Route: 065
  6. RISPERIDONE [Suspect]
     Indication: SCHIZOAFFECTIVE DISORDER
     Dosage: 1 MG/DAY
     Route: 065
  7. RISPERIDONE [Suspect]
     Dosage: 2 MG, UNK
     Route: 065

REACTIONS (1)
  - NEUROLEPTIC MALIGNANT SYNDROME [None]
